FAERS Safety Report 4334213-4 (Version None)
Quarter: 2004Q2

REPORT INFORMATION
  Report Type: 
  Country: None (occurrence: None)
  Receive Date: 20040405
  Receipt Date: 20040326
  Transmission Date: 20050107
  Serious: Yes (Hospitalization)
  Sender: FDA-Public Use
  Company Number: US-JNJFOC-20040303967

PATIENT
  Age: 86 Year
  Sex: Male
  Weight: 60.6 kg

DRUGS (21)
  1. ABCIXIMAB- BLINDED (ABCIXIMAB) INJECTION [Suspect]
     Indication: ACUTE MYOCARDIAL INFARCTION
     Dosage: INTRAVENOUS
     Route: 042
     Dates: start: 20031120
  2. RETEVASE [Suspect]
     Indication: ACUTE MYOCARDIAL INFARCTION
     Dosage: INTRAVENOUS
     Route: 042
     Dates: start: 20031120
  3. PLACEBO (PLACEBO) INJECTION [Suspect]
     Indication: ACUTE MYOCARDIAL INFARCTION
     Dosage: INTRAVENOUS
     Route: 042
     Dates: start: 20031120
  4. THEO-DUR [Concomitant]
  5. ALBUTEROL [Concomitant]
  6. CHLORPROPAMIDE [Concomitant]
  7. GLUCOPHAGE [Concomitant]
  8. GLUCOSCAN (TECHNETIUM TC 99M GLUCEPTATE) [Concomitant]
  9. B12 (CYANOCOBALAMIN) [Concomitant]
  10. ALPHAGAN [Concomitant]
  11. FLOVENT [Concomitant]
  12. ADVIL [Concomitant]
  13. PRILOSEC [Concomitant]
  14. REGLAN [Concomitant]
  15. ASPIRIN [Concomitant]
  16. PLAVIX [Concomitant]
  17. TOPROL (METOPROLOL SUCCINATE) [Concomitant]
  18. LISINOPRIL [Concomitant]
  19. NITROGLYCERIN [Concomitant]
  20. METAMUCIL-2 [Concomitant]
  21. SURFAK (DOCUSATE CALCIUM) [Concomitant]

REACTIONS (13)
  - ACUTE PRERENAL FAILURE [None]
  - ASTHENIA [None]
  - CONFUSIONAL STATE [None]
  - DEHYDRATION [None]
  - DRUG INTERACTION [None]
  - EROSIVE OESOPHAGITIS [None]
  - HAEMATEMESIS [None]
  - HYPERKALAEMIA [None]
  - LOBAR PNEUMONIA [None]
  - MALNUTRITION [None]
  - NEPHROLITHIASIS [None]
  - OESOPHAGITIS [None]
  - SENILE DEMENTIA [None]
